FAERS Safety Report 6527475-6 (Version None)
Quarter: 2010Q1

REPORT INFORMATION
  Report Type: 
  Country: None (occurrence: None)
  Receive Date: 20100105
  Receipt Date: 20091221
  Transmission Date: 20100710
  Serious: Yes (Other)
  Sender: FDA-Public Use
  Company Number: CA-GENENTECH-296059

PATIENT
  Sex: Female
  Weight: 182.5 kg

DRUGS (1)
  1. XOLAIR [Suspect]
     Indication: ASTHMA
     Dosage: 300 MG, Q2W
     Route: 058
     Dates: start: 20080723

REACTIONS (4)
  - BLOOD PRESSURE DIASTOLIC DECREASED [None]
  - CATARACT OPERATION [None]
  - GLAUCOMA [None]
  - RESPIRATORY RATE INCREASED [None]
